FAERS Safety Report 4615993-7 (Version None)
Quarter: 2005Q1

REPORT INFORMATION
  Report Type: 
  Country: None (occurrence: None)
  Receive Date: 20050323
  Receipt Date: 20050311
  Transmission Date: 20050727
  Serious: Yes (Hospitalization, Other)
  Sender: FDA-Public Use
  Company Number: US-JNJFOC-20050303574

PATIENT
  Sex: Female
  Weight: 65.77 kg

DRUGS (2)
  1. REMICADE [Suspect]
     Route: 042
  2. REMICADE [Suspect]
     Indication: CROHN'S DISEASE
     Route: 042

REACTIONS (11)
  - APPENDICITIS [None]
  - ARTHRALGIA [None]
  - COUGH [None]
  - DIARRHOEA HAEMORRHAGIC [None]
  - HYPERHIDROSIS [None]
  - INFUSION RELATED REACTION [None]
  - LABORATORY TEST ABNORMAL [None]
  - LOSS OF CONSCIOUSNESS [None]
  - PAIN IN EXTREMITY [None]
  - RASH [None]
  - RESPIRATORY DISORDER [None]
